FAERS Safety Report 13542146 (Version 5)
Quarter: 2017Q4

REPORT INFORMATION
  Report Type: Spontaneous
  Country: AU (occurrence: AU)
  Receive Date: 20170512
  Receipt Date: 20171211
  Transmission Date: 20180320
  Serious: Yes (Life-Threatening, Hospitalization, Other)
  Sender: FDA-Public Use
  Company Number: AU-BAUSCH-BL-2017-014513

PATIENT
  Age: 15 Year
  Sex: Male
  Weight: 70 kg

DRUGS (17)
  1. RAMIPRIL. [Suspect]
     Active Substance: RAMIPRIL
     Indication: OVERDOSE
     Dosage: IN TOTAL
     Route: 048
  2. METHYLENE BLUE. [Suspect]
     Active Substance: METHYLENE BLUE
     Indication: PRODUCT USED FOR UNKNOWN INDICATION
     Dosage: BOLUS
     Route: 040
  3. NOREPINEPHRINE. [Suspect]
     Active Substance: NOREPINEPHRINE
     Route: 065
  4. METHYLENE BLUE. [Suspect]
     Active Substance: METHYLENE BLUE
     Indication: SHOCK
     Route: 040
  5. METHYLENE BLUE. [Suspect]
     Active Substance: METHYLENE BLUE
     Dosage: EVERY HOUR
     Route: 042
  6. METHYLENE BLUE. [Suspect]
     Active Substance: METHYLENE BLUE
     Indication: BLOOD PRESSURE SYSTOLIC DECREASED
     Dosage: EVERY HOUR
     Route: 042
  7. PROMETHAZINE HYDROCHLORIDE. [Suspect]
     Active Substance: PROMETHAZINE HYDROCHLORIDE
     Indication: OVERDOSE
     Dosage: TOTAL
     Route: 048
  8. LEVETIRACETAM. [Suspect]
     Active Substance: LEVETIRACETAM
     Indication: PRODUCT USED FOR UNKNOWN INDICATION
     Route: 048
  9. METHYLENE BLUE. [Suspect]
     Active Substance: METHYLENE BLUE
     Indication: TACHYCARDIA
  10. LITHIUM. [Suspect]
     Active Substance: LITHIUM
     Indication: OVERDOSE
     Dosage: TOTAL
     Route: 048
  11. VENLAFAXINE HYDROCHLORIDE. [Suspect]
     Active Substance: VENLAFAXINE HYDROCHLORIDE
     Indication: DEPRESSION
     Dosage: IMMEDIATE AND EXTENDED RELEASE,?TOTAL
     Route: 048
  12. DESVENLAFAXINE SUCCINATE. [Suspect]
     Active Substance: DESVENLAFAXINE SUCCINATE
     Indication: OVERDOSE
     Dosage: EXTENDED RELEASE?TOTAL
     Route: 048
  13. AMLODIPINE BESILATE [Suspect]
     Active Substance: AMLODIPINE BESYLATE
     Indication: OVERDOSE
     Dosage: TOTAL
     Route: 048
  14. METHYLENE BLUE. [Suspect]
     Active Substance: METHYLENE BLUE
     Dosage: EVERY HOUR
     Route: 042
  15. QUETIAPINE FUMARATE. [Suspect]
     Active Substance: QUETIAPINE FUMARATE
     Indication: OVERDOSE
     Dosage: IMMEDIATE AND EXTENDED RELEASE?TOTAL
     Route: 048
  16. FLUOXETINE [Suspect]
     Active Substance: FLUOXETINE HYDROCHLORIDE
     Indication: OVERDOSE
     Dosage: TOTAL
     Route: 048
  17. NOREPINEPHRINE. [Suspect]
     Active Substance: NOREPINEPHRINE
     Indication: BLOOD PRESSURE SYSTOLIC DECREASED
     Route: 065

REACTIONS (8)
  - Blood creatinine increased [Recovered/Resolved]
  - Toxicity to various agents [Recovered/Resolved]
  - Oliguria [Recovered/Resolved]
  - Overdose [Recovered/Resolved]
  - Shock [Recovered/Resolved]
  - Serotonin syndrome [Recovered/Resolved]
  - Drug interaction [Recovered/Resolved]
  - Drug ineffective [Unknown]
